FAERS Safety Report 7225204-4 (Version None)
Quarter: 2011Q1

REPORT INFORMATION
  Report Type: 
  Country: None (occurrence: None)
  Receive Date: 20110113
  Receipt Date: 20110107
  Transmission Date: 20110831
  Serious: Yes (Other)
  Sender: FDA-Public Use
  Company Number: A0905180A

PATIENT
  Sex: Male

DRUGS (1)
  1. LAMICTAL [Suspect]
     Route: 065

REACTIONS (8)
  - STEVENS-JOHNSON SYNDROME [None]
  - EMERGENCY CARE EXAMINATION [None]
  - INCOHERENT [None]
  - SALIVA ALTERED [None]
  - APPARENT DEATH [None]
  - PNEUMONIA [None]
  - ANGER [None]
  - BURNING SENSATION [None]
